FAERS Safety Report 22898748 (Version 3)
Quarter: 2023Q4

REPORT INFORMATION
  Report Type: Spontaneous
  Country: CA (occurrence: CA)
  Receive Date: 20230904
  Receipt Date: 20231016
  Transmission Date: 20240110
  Serious: Yes (Other)
  Sender: FDA-Public Use
  Company Number: CA-BEH-2023162651

PATIENT
  Sex: Female

DRUGS (1)
  1. PRIVIGEN [Suspect]
     Active Substance: HUMAN IMMUNOGLOBULIN G
     Dosage: 37 GRAM, TOT
     Route: 065
     Dates: start: 20230810, end: 20230810

REACTIONS (30)
  - Drug hypersensitivity [Unknown]
  - Anaphylactic reaction [Unknown]
  - Anaphylactoid reaction [Unknown]
  - Tachypnoea [Unknown]
  - Rash [Unknown]
  - Dyspnoea [Unknown]
  - Lip oedema [Unknown]
  - Tongue oedema [Unknown]
  - Conjunctival oedema [Unknown]
  - Hyperhidrosis [Unknown]
  - Flushing [Unknown]
  - Lip swelling [Unknown]
  - Tachypnoea [Unknown]
  - Rash [Unknown]
  - Dyspnoea [Unknown]
  - Lip oedema [Unknown]
  - Tongue oedema [Unknown]
  - Conjunctival oedema [Unknown]
  - Hyperhidrosis [Unknown]
  - Flushing [Unknown]
  - Lip swelling [Unknown]
  - Tachypnoea [Unknown]
  - Rash [Unknown]
  - Dyspnoea [Unknown]
  - Lip oedema [Unknown]
  - Tongue oedema [Unknown]
  - Conjunctival oedema [Unknown]
  - Hyperhidrosis [Unknown]
  - Flushing [Unknown]
  - Lip swelling [Unknown]

NARRATIVE: CASE EVENT DATE: 20230810
